FAERS Safety Report 23590197 (Version 1)
Quarter: 2024Q1

REPORT INFORMATION
  Report Type: Spontaneous
  Country: US (occurrence: US)
  Receive Date: 20240304
  Receipt Date: 20240304
  Transmission Date: 20240410
  Serious: Yes (Hospitalization)
  Sender: FDA-Public Use
  Company Number: US-TEVA-VS-3161817

PATIENT
  Age: 57 Year
  Sex: Male

DRUGS (1)
  1. CARVEDILOL [Suspect]
     Active Substance: CARVEDILOL
     Indication: Essential hypertension
     Route: 065

REACTIONS (2)
  - Atrioventricular block [Recovered/Resolved]
  - Shock [Recovered/Resolved]
